FAERS Safety Report 5302344-8 (Version None)
Quarter: 2007Q1

REPORT INFORMATION
  Report Type: 
  Country: None (occurrence: None)
  Receive Date: 20070201
  Receipt Date: 20061211
  Transmission Date: 20070707
  Serious: No
  Sender: FDA-Public Use
  Company Number: 2006PV026744

PATIENT
  Age: 65 Year
  Sex: Male
  Weight: 108.4097 kg

DRUGS (3)
  1. BYETTA [Suspect]
     Indication: DRUG USE FOR UNKNOWN INDICATION
     Dosage: 5 MCG;BID;SC
     Route: 058
     Dates: start: 20061207
  2. GLIPIZIDE [Concomitant]
  3. ACTOS [Concomitant]

REACTIONS (3)
  - BLOOD GLUCOSE DECREASED [None]
  - SLUGGISHNESS [None]
  - TREMOR [None]
